FAERS Safety Report 23547499 (Version 6)
Quarter: 2024Q2

REPORT INFORMATION
  Report Type: Spontaneous
  Country: US (occurrence: US)
  Receive Date: 20240221
  Receipt Date: 20240423
  Transmission Date: 20240716
  Serious: Yes (Hospitalization, Other)
  Sender: FDA-Public Use
  Company Number: US-GILEAD-2024-0662828

PATIENT
  Age: 61 Year
  Sex: Female
  Weight: 97.6 kg

DRUGS (5)
  1. TRODELVY [Suspect]
     Active Substance: SACITUZUMAB GOVITECAN-HZIY
     Indication: Breast cancer metastatic
     Dosage: 1007 MG D1 AND D8 OF 21 DAY CYCLE
     Route: 042
     Dates: start: 20230209, end: 20240123
  2. TRODELVY [Suspect]
     Active Substance: SACITUZUMAB GOVITECAN-HZIY
     Dosage: 10 MG/KG
     Route: 042
     Dates: start: 20240321
  3. PEMBROLIZUMAB [Suspect]
     Active Substance: PEMBROLIZUMAB
     Indication: Breast cancer metastatic
     Dosage: 200 MG, Q3WK
     Route: 042
     Dates: start: 20230209, end: 20240116
  4. PREDNISONE [Suspect]
     Active Substance: PREDNISONE
     Indication: Hepatitis
     Dosage: 1-2 MG/KG
     Route: 048
     Dates: start: 20240205
  5. CELLCEPT [Concomitant]
     Active Substance: MYCOPHENOLATE MOFETIL
     Indication: Hepatitis
     Dosage: 500 MG
     Route: 048
     Dates: start: 20240222

REACTIONS (1)
  - Hepatitis [Unknown]
